FAERS Safety Report 24165279 (Version 2)
Quarter: 2024Q3

REPORT INFORMATION
  Report Type: Spontaneous
  Country: US (occurrence: US)
  Receive Date: 20240802
  Receipt Date: 20240823
  Transmission Date: 20241017
  Serious: Yes (Other)
  Sender: AUROBINDO
  Company Number: US-AUROBINDO-AUR-APL-2024-037475

PATIENT
  Age: 47 Year
  Sex: Male
  Weight: 117.93 kg

DRUGS (1)
  1. DEXTROAMPHET SACCHARAT, AMPHET ASPARTATE, DEXTROAMPHET SULFATE AND AMP [Suspect]
     Active Substance: AMPHETAMINE ASPARTATE\AMPHETAMINE SULFATE\DEXTROAMPHETAMINE SACCHARATE\DEXTROAMPHETAMINE SULFATE
     Indication: Attention deficit hyperactivity disorder
     Dosage: 1 DOSAGE FORM, TWO TIMES A DAY
     Route: 048
     Dates: start: 20240717, end: 20240718

REACTIONS (10)
  - Tardive dyskinesia [Not Recovered/Not Resolved]
  - Condition aggravated [Recovered/Resolved]
  - Facial spasm [Recovered/Resolved]
  - Bruxism [Recovered/Resolved]
  - Muscle tightness [Recovered/Resolved]
  - Muscle spasms [Unknown]
  - Therapy cessation [Unknown]
  - Product colour issue [Unknown]
  - Product physical issue [Unknown]
  - Product dose omission issue [Unknown]

NARRATIVE: CASE EVENT DATE: 20240717
